FAERS Safety Report 14258368 (Version 2)
Quarter: 2018Q4

REPORT INFORMATION
  Report Type: Report from Study
  Country: CA (occurrence: CA)
  Receive Date: 20171207
  Receipt Date: 20181112
  Transmission Date: 20190204
  Serious: Yes (Other)
  Sender: FDA-Public Use
  Company Number: CA-ORION CORPORATION ORION PHARMA-TREX2017-3980

PATIENT
  Age: 17 Year
  Sex: Female

DRUGS (5)
  1. ENBREL [Suspect]
     Active Substance: ETANERCEPT
     Indication: PRODUCT USED FOR UNKNOWN INDICATION
     Route: 065
     Dates: start: 2014, end: 2017
  2. DICLOFENAC [Concomitant]
     Active Substance: DICLOFENAC
     Route: 065
  3. METHOTREXATE (TRADE NAME UNKNOWN) [Suspect]
     Active Substance: METHOTREXATE
     Indication: PRODUCT USED FOR UNKNOWN INDICATION
     Route: 065
  4. SULFASALAZINE. [Suspect]
     Active Substance: SULFASALAZINE
     Indication: PRODUCT USED FOR UNKNOWN INDICATION
     Route: 065
  5. NAPROXEN. [Concomitant]
     Active Substance: NAPROXEN
     Route: 065

REACTIONS (4)
  - Treatment failure [Unknown]
  - Drug intolerance [Unknown]
  - Uveitis [Unknown]
  - Juvenile idiopathic arthritis [Unknown]

NARRATIVE: CASE EVENT DATE: 201701
